FAERS Safety Report 6602478-1 (Version None)
Quarter: 2010Q1

REPORT INFORMATION
  Report Type: 
  Country: None (occurrence: None)
  Receive Date: 20100225
  Receipt Date: 20100218
  Transmission Date: 20100710
  Serious: Yes (Hospitalization, Other)
  Sender: FDA-Public Use
  Company Number: CA-ABBOTT-10P-028-0627610-00

PATIENT
  Sex: Female
  Weight: 93.978 kg

DRUGS (5)
  1. HUMIRA [Suspect]
     Indication: RHEUMATOID ARTHRITIS
     Route: 058
     Dates: start: 20071016, end: 20090701
  2. ATACAND HCT [Concomitant]
     Indication: HYPERTENSION
     Dosage: 16/12.5MG
     Route: 048
  3. PANTOPRAZOLE [Concomitant]
     Indication: DRUG USE FOR UNKNOWN INDICATION
     Route: 048
  4. PRO ASA CHEWABLE [Concomitant]
     Indication: DRUG USE FOR UNKNOWN INDICATION
     Route: 048
  5. EFFEXOR [Concomitant]
     Indication: DRUG USE FOR UNKNOWN INDICATION
     Route: 048

REACTIONS (5)
  - ATRIAL FIBRILLATION [None]
  - BREAST CANCER [None]
  - CARDIOMEGALY [None]
  - INJECTION SITE PAIN [None]
  - PALPITATIONS [None]
